FAERS Safety Report 9242274 (Version 1)
Quarter: 2013Q2

REPORT INFORMATION
  Report Type: Spontaneous
  Country: CH (occurrence: CH)
  Receive Date: 20130419
  Receipt Date: 20130419
  Transmission Date: 20140414
  Serious: Yes (Hospitalization)
  Sender: FDA-Public Use
  Company Number: CH-JNJFOC-20130409424

PATIENT
  Age: 47 Year
  Sex: Male
  Weight: 80 kg

DRUGS (7)
  1. PALEXIA [Suspect]
     Indication: PRODUCT USED FOR UNKNOWN INDICATION
     Route: 048
     Dates: start: 20130102, end: 20130107
  2. PALEXIA [Suspect]
     Indication: PRODUCT USED FOR UNKNOWN INDICATION
     Route: 048
     Dates: start: 20130402, end: 20130408
  3. PALEXIA [Suspect]
     Indication: PRODUCT USED FOR UNKNOWN INDICATION
     Route: 048
     Dates: start: 20130108, end: 20130401
  4. MST [Concomitant]
     Indication: PAIN
     Route: 048
     Dates: start: 20130101, end: 20130102
  5. MST [Concomitant]
     Indication: PAIN
     Route: 048
     Dates: start: 20130402, end: 20130407
  6. MST [Concomitant]
     Indication: PAIN
     Route: 048
     Dates: start: 20130408
  7. ACETYLCARNITINE HYDROCHLORIDE [Concomitant]
     Indication: PRODUCT USED FOR UNKNOWN INDICATION
     Route: 048
     Dates: start: 20130110

REACTIONS (2)
  - Dissociative disorder [Not Recovered/Not Resolved]
  - Hypertension [Recovering/Resolving]
